FAERS Safety Report 17402827 (Version 1)
Quarter: 2020Q1

REPORT INFORMATION
  Report Type: Spontaneous
  Country: US (occurrence: US)
  Receive Date: 20200211
  Receipt Date: 20200211
  Transmission Date: 20200409
  Serious: Yes (Hospitalization)
  Sender: FDA-Public Use
  Company Number: US-PFIZER INC-2020057301

PATIENT
  Age: 19 Year
  Sex: Female
  Weight: 68.4 kg

DRUGS (5)
  1. VITAMIN D [COLECALCIFEROL] [Concomitant]
     Active Substance: CHOLECALCIFEROL
     Dosage: UNK, WEEKLY [MEGA-DOSE ONCE A WEEK]
  2. SERTRALINE HCL [Suspect]
     Active Substance: SERTRALINE HYDROCHLORIDE
     Indication: ANXIETY DISORDER
     Dosage: 50 MG, 1X/DAY
     Route: 048
     Dates: start: 20200110, end: 20200201
  3. SPIRONOLACTONE. [Concomitant]
     Active Substance: SPIRONOLACTONE
     Indication: POLYCYSTIC OVARIES
     Dosage: UNK
  4. SERTRALINE HCL [Suspect]
     Active Substance: SERTRALINE HYDROCHLORIDE
     Indication: MAJOR DEPRESSION
     Dosage: 25 MG, DAILY [FIRST 4 DAYS]
  5. METFORMIN [Concomitant]
     Active Substance: METFORMIN HYDROCHLORIDE
     Indication: POLYCYSTIC OVARIES
     Dosage: UNK

REACTIONS (9)
  - Dry skin [Not Recovered/Not Resolved]
  - White blood cell count increased [Unknown]
  - Suicidal ideation [Recovered/Resolved]
  - Dark circles under eyes [Not Recovered/Not Resolved]
  - Mania [Unknown]
  - Heart rate increased [Unknown]
  - Skin laceration [Unknown]
  - Periorbital swelling [Unknown]
  - Depression [Unknown]

NARRATIVE: CASE EVENT DATE: 20200123
